FAERS Safety Report 7233450-9 (Version None)
Quarter: 2011Q1

REPORT INFORMATION
  Report Type: 
  Country: None (occurrence: None)
  Receive Date: 20110119
  Receipt Date: 20110111
  Transmission Date: 20110831
  Serious: Yes (Life-Threatening, Hospitalization, Disabling, Other)
  Sender: FDA-Public Use
  Company Number: JP-PFIZER INC-2010115504

PATIENT
  Sex: Female
  Weight: 2.3 kg

DRUGS (2)
  1. WYPAX [Suspect]
     Indication: PANIC DISORDER
     Dosage: 1 MG
     Route: 064
  2. ZOLOFT [Suspect]
     Indication: PANIC DISORDER
     Dosage: 50 MG/DAY
     Route: 064

REACTIONS (11)
  - SOMNOLENCE NEONATAL [None]
  - SEPSIS NEONATAL [None]
  - HYPERTONIA NEONATAL [None]
  - TREMOR NEONATAL [None]
  - CEREBRAL HAEMORRHAGE [None]
  - PNEUMONIA KLEBSIELLA [None]
  - KLEBSIELLA BACTERAEMIA [None]
  - DRUG EXPOSURE DURING PREGNANCY [None]
  - NEONATAL ASPHYXIA [None]
  - COMA NEONATAL [None]
  - HYPOXIC-ISCHAEMIC ENCEPHALOPATHY [None]
